FAERS Safety Report 5026583-9 (Version None)
Quarter: 2006Q2

REPORT INFORMATION
  Report Type: 
  Country: None (occurrence: None)
  Receive Date: 20060615
  Receipt Date: 20060603
  Transmission Date: 20061013
  Serious: Yes (Hospitalization)
  Sender: FDA-Public Use
  Company Number: US-ROCHE-450605

PATIENT
  Age: 40 Year
  Sex: Female

DRUGS (1)
  1. PEGASYS [Suspect]
     Indication: DRUG USE FOR UNKNOWN INDICATION
     Route: 058

REACTIONS (13)
  - ALOPECIA [None]
  - AMNESIA [None]
  - DEPRESSION [None]
  - DISTURBANCE IN ATTENTION [None]
  - EAR PAIN [None]
  - EMOTIONAL DISORDER [None]
  - GALLBLADDER DISORDER [None]
  - INCREASED TENDENCY TO BRUISE [None]
  - MENOPAUSAL SYMPTOMS [None]
  - MUSCLE SPASMS [None]
  - PHOTOPHOBIA [None]
  - VISUAL ACUITY REDUCED [None]
  - WEIGHT DECREASED [None]
